FAERS Safety Report 15273344 (Version 1)
Quarter: 2018Q3

REPORT INFORMATION
  Report Type: Spontaneous
  Country: US (occurrence: US)
  Receive Date: 20180813
  Receipt Date: 20180813
  Transmission Date: 20181010
  Serious: Yes (Other)
  Sender: FDA-Public Use
  Company Number: US-SHIRE-US201830599

PATIENT
  Age: 54 Year
  Sex: Female

DRUGS (1)
  1. NATPARA (PARATHYROID HORMONE) [Suspect]
     Active Substance: PARATHYROID HORMONE
     Indication: HYPOPARATHYROIDISM
     Dosage: 100 ?G, 1X/DAY:QD
     Route: 058
     Dates: start: 20160218

REACTIONS (5)
  - Sjogren^s syndrome [Unknown]
  - Amenorrhoea [Not Recovered/Not Resolved]
  - Dyspepsia [Unknown]
  - Malabsorption [Unknown]
  - Aptyalism [Unknown]

NARRATIVE: CASE EVENT DATE: 201801
